FAERS Safety Report 24900367 (Version 1)
Quarter: 2025Q1

REPORT INFORMATION
  Report Type: Spontaneous
  Country: US (occurrence: None)
  Receive Date: 20250128
  Receipt Date: 20250128
  Transmission Date: 20250408
  Serious: Yes (Hospitalization)
  Sender: FDA-CTU
  Company Number: None

PATIENT
  Age: 77 Year
  Sex: Male
  Weight: 92 kg

DRUGS (1)
  1. ROSUVASTATIN CALCIUM [Suspect]
     Active Substance: ROSUVASTATIN CALCIUM
     Indication: Hyperlipidaemia
     Dosage: FREQUENCY : AT BEDTIME;?
     Route: 048
     Dates: end: 20240720

REACTIONS (8)
  - Blood creatinine increased [None]
  - Acute kidney injury [None]
  - Rhabdomyolysis [None]
  - Liver injury [None]
  - Therapy cessation [None]
  - Hypertension [None]
  - Gout [None]
  - Productive cough [None]

NARRATIVE: CASE EVENT DATE: 20240720
